FAERS Safety Report 10675268 (Version 3)
Quarter: 2015Q1

REPORT INFORMATION
  Report Type: Report from Study
  Country: BE (occurrence: BE)
  Receive Date: 20141224
  Receipt Date: 20150202
  Transmission Date: 20150720
  Serious: Yes (Other)
  Sender: FDA-Public Use
  Company Number: BE-CELGENE-013-21880-14091743

PATIENT
  Sex: Male

DRUGS (5)
  1. MERONEM [Concomitant]
     Active Substance: MEROPENEM
     Indication: INFECTION
     Route: 065
     Dates: start: 20140825, end: 20140918
  2. CASPOFUNGIN [Concomitant]
     Active Substance: CASPOFUNGIN
     Indication: FEBRILE NEUTROPENIA
     Route: 065
     Dates: start: 20140815, end: 20140917
  3. IDARUBICIN [Suspect]
     Active Substance: IDARUBICIN
     Indication: ACUTE MYELOID LEUKAEMIA
     Dosage: 23.5 MILLIGRAM
     Route: 065
     Dates: start: 20140804, end: 20140807
  4. REVLIMID [Suspect]
     Active Substance: LENALIDOMIDE
     Indication: ACUTE MYELOID LEUKAEMIA
     Route: 048
     Dates: start: 20140804, end: 20140824
  5. CYTARABIN [Suspect]
     Active Substance: CYTARABINE
     Indication: ACUTE MYELOID LEUKAEMIA
     Dosage: 392 MILLIGRAM
     Route: 065
     Dates: start: 20140804, end: 20140810

REACTIONS (1)
  - Post transfusion purpura [Recovered/Resolved]

NARRATIVE: CASE EVENT DATE: 20140909
